FAERS Safety Report 12546697 (Version 1)
Quarter: 2016Q3

REPORT INFORMATION
  Report Type: Spontaneous
  Country: US (occurrence: US)
  Receive Date: 20160711
  Receipt Date: 20160711
  Transmission Date: 20161109
  Serious: Yes (Other)
  Sender: FDA-Public Use
  Company Number: US-GLAXOSMITHKLINE-US2016GSK098508

PATIENT
  Sex: Female

DRUGS (1)
  1. ADVAIR HFA [Suspect]
     Active Substance: FLUTICASONE PROPIONATE\SALMETEROL XINAFOATE
     Indication: CHRONIC OBSTRUCTIVE PULMONARY DISEASE
     Dosage: UNK
     Dates: start: 2014

REACTIONS (13)
  - Thyroidectomy [Unknown]
  - Cystocele [Unknown]
  - Rectocele repair [Unknown]
  - Transient ischaemic attack [Unknown]
  - Intracranial aneurysm [Unknown]
  - Brain neoplasm [Unknown]
  - Intra-cerebral aneurysm operation [Unknown]
  - Eyelid disorder [Not Recovered/Not Resolved]
  - Post procedural complication [Not Recovered/Not Resolved]
  - Brain tumour operation [Unknown]
  - Rectocele [Unknown]
  - Cystocele repair [Unknown]
  - Respiratory disorder [Not Recovered/Not Resolved]

NARRATIVE: CASE EVENT DATE: 2015
